FAERS Safety Report 7750457-3 (Version None)
Quarter: 2011Q3

REPORT INFORMATION
  Report Type: 
  Country: None (occurrence: None)
  Receive Date: 20110914
  Receipt Date: 20110902
  Transmission Date: 20111222
  Serious: Yes (Other)
  Sender: FDA-Public Use
  Company Number: FR-NOVOPROD-334492

PATIENT

DRUGS (16)
  1. INDAPAMIDE [Concomitant]
     Dosage: 1 DF, QD
     Route: 048
  2. CRESTOR [Concomitant]
     Dosage: 20 MG, QD
     Route: 048
  3. VICTOZA [Suspect]
     Indication: TYPE 2 DIABETES MELLITUS
     Dosage: UNK
     Route: 058
     Dates: start: 20101116, end: 20101116
  4. VICTOZA [Suspect]
     Dosage: 1.8 MG, QD
     Route: 058
  5. GLUCOPHAGE [Concomitant]
     Indication: TYPE 2 DIABETES MELLITUS
     Dosage: 3 G, QD
     Route: 048
  6. SPIRIVA [Concomitant]
  7. SERETIDE [Concomitant]
  8. LUMIGAN [Concomitant]
  9. ATACAND [Concomitant]
     Dosage: 16 MG, QD
     Route: 048
  10. ASPEGIC 1000 [Concomitant]
     Dosage: 250 MG, QD
     Route: 048
  11. LEVOTHYROXINE SODIUM [Concomitant]
     Dosage: 150 A?G, QD
     Route: 048
  12. ACTOS [Concomitant]
     Indication: TYPE 2 DIABETES MELLITUS
     Dosage: 1 DF, QD
     Route: 048
  13. TRAMADOL HCL [Concomitant]
  14. VICTOZA [Suspect]
     Dosage: UNK
     Route: 058
     Dates: start: 20101119, end: 20101119
  15. VICTOZA [Suspect]
     Dosage: 0.6 MG, QD
     Route: 058
     Dates: start: 20110311
  16. VICTOZA [Suspect]
     Dosage: 1.2 MG, QD
     Route: 058
     Dates: start: 20110315

REACTIONS (1)
  - CHEST PAIN [None]
